FAERS Safety Report 4389498-5 (Version None)
Quarter: 2004Q3

REPORT INFORMATION
  Report Type: 
  Country: None (occurrence: None)
  Receive Date: 20040702
  Receipt Date: 20040322
  Transmission Date: 20050211
  Serious: Yes (Hospitalization)
  Sender: FDA-Public Use
  Company Number: 2004JP000565

PATIENT
  Age: 47 Year
  Sex: Female

DRUGS (11)
  1. CEFAZOLIN [Suspect]
     Indication: BRONCHITIS
     Dosage: .5G PER DAY
     Route: 042
     Dates: start: 20040312, end: 20040312
  2. ZOVIRAX [Suspect]
     Indication: HERPES ZOSTER
     Dosage: 250MG PER DAY
     Route: 042
     Dates: start: 20040311, end: 20040311
  3. PREDNISOLONE [Concomitant]
     Route: 048
  4. ALLOPURINOL TAB [Concomitant]
     Route: 048
  5. TAGAMET [Concomitant]
     Route: 048
  6. REBAMIPIDE [Concomitant]
     Route: 048
  7. CALCIUM CARBONATE [Concomitant]
  8. DIOVANE [Concomitant]
     Route: 048
  9. SARPOGRELATE HYDROCHLORIDE [Concomitant]
     Route: 048
  10. ROCALTROL [Concomitant]
  11. CALCIUM POLYSTYRENE SULFONATE [Concomitant]

REACTIONS (10)
  - ALANINE AMINOTRANSFERASE INCREASED [None]
  - ASPARTATE AMINOTRANSFERASE INCREASED [None]
  - BLOOD CREATINE PHOSPHOKINASE INCREASED [None]
  - COUGH [None]
  - DYSPNOEA [None]
  - HEPATITIS FULMINANT [None]
  - LOSS OF CONSCIOUSNESS [None]
  - MALAISE [None]
  - PROTHROMBIN TIME PROLONGED [None]
  - PYREXIA [None]
